FAERS Safety Report 25509816 (Version 1)
Quarter: 2025Q3

REPORT INFORMATION
  Report Type: Spontaneous
  Country: EU (occurrence: EU)
  Receive Date: 20250703
  Receipt Date: 20250703
  Transmission Date: 20251020
  Serious: Yes (Other)
  Sender: MYLAN
  Company Number: None

PATIENT
  Sex: Female

DRUGS (16)
  1. PREGABALIN [Suspect]
     Active Substance: PREGABALIN
     Indication: Product used for unknown indication
     Dosage: 4200 MILLIGRAM, QD (28 TABLETS)
  2. PREGABALIN [Suspect]
     Active Substance: PREGABALIN
     Dosage: 4200 MILLIGRAM, QD (28 TABLETS)
     Route: 048
  3. PREGABALIN [Suspect]
     Active Substance: PREGABALIN
     Dosage: 4200 MILLIGRAM, QD (28 TABLETS)
     Route: 048
  4. PREGABALIN [Suspect]
     Active Substance: PREGABALIN
     Dosage: 4200 MILLIGRAM, QD (28 TABLETS)
  5. CLOZAPINE [Suspect]
     Active Substance: CLOZAPINE
     Indication: Product used for unknown indication
     Dosage: 750 MILLIGRAM, QD (30 TABLETS)
  6. CLOZAPINE [Suspect]
     Active Substance: CLOZAPINE
     Dosage: 750 MILLIGRAM, QD (30 TABLETS)
     Route: 048
  7. CLOZAPINE [Suspect]
     Active Substance: CLOZAPINE
     Dosage: 750 MILLIGRAM, QD (30 TABLETS)
     Route: 048
  8. CLOZAPINE [Suspect]
     Active Substance: CLOZAPINE
     Dosage: 750 MILLIGRAM, QD (30 TABLETS)
  9. CARBAMAZEPINE [Suspect]
     Active Substance: CARBAMAZEPINE
     Indication: Product used for unknown indication
     Dosage: 4000 MILLIGRAM, QD (20 TABLETS)
  10. CARBAMAZEPINE [Suspect]
     Active Substance: CARBAMAZEPINE
     Dosage: 4000 MILLIGRAM, QD (20 TABLETS)
     Route: 048
  11. CARBAMAZEPINE [Suspect]
     Active Substance: CARBAMAZEPINE
     Dosage: 4000 MILLIGRAM, QD (20 TABLETS)
     Route: 048
  12. CARBAMAZEPINE [Suspect]
     Active Substance: CARBAMAZEPINE
     Dosage: 4000 MILLIGRAM, QD (20 TABLETS)
  13. RIVOTRIL [Suspect]
     Active Substance: CLONAZEPAM
     Indication: Product used for unknown indication
     Dosage: 25 MILLIGRAM, QD (50 TABLETS)
  14. RIVOTRIL [Suspect]
     Active Substance: CLONAZEPAM
     Dosage: 25 MILLIGRAM, QD (50 TABLETS)
     Route: 048
  15. RIVOTRIL [Suspect]
     Active Substance: CLONAZEPAM
     Dosage: 25 MILLIGRAM, QD (50 TABLETS)
     Route: 048
  16. RIVOTRIL [Suspect]
     Active Substance: CLONAZEPAM
     Dosage: 25 MILLIGRAM, QD (50 TABLETS)

REACTIONS (5)
  - Cardiovascular symptom [Unknown]
  - Neurological symptom [Unknown]
  - Suicide attempt [Unknown]
  - Loss of consciousness [Unknown]
  - Intentional overdose [Unknown]

NARRATIVE: CASE EVENT DATE: 20250501
